FAERS Safety Report 9123085 (Version 1)
Quarter: 2013Q1

REPORT INFORMATION
  Report Type: Spontaneous
  Country: US (occurrence: None)
  Receive Date: 20130131
  Receipt Date: 20130131
  Transmission Date: 20140127
  Serious: Yes (Hospitalization)
  Sender: FDA-Public Use
  Company Number: 2013S1000186

PATIENT
  Age: 79 Year
  Sex: Male
  Weight: 101 kg

DRUGS (14)
  1. LIVALO (PITAVASTATIN) TABLETS 2 MG [Suspect]
     Indication: BLOOD CHOLESTEROL INCREASED
     Route: 048
     Dates: start: 20120826, end: 20121218
  2. OMEPRAZOLE [Concomitant]
  3. SYNTHROID [Concomitant]
  4. LISINOPRIL [Concomitant]
  5. FUROSEMIDE [Concomitant]
  6. KLOR-CON [Concomitant]
  7. ALLOPURINOL [Concomitant]
  8. ASPIRIN [Concomitant]
  9. TERAZOSIN [Concomitant]
  10. MELOXICAM [Concomitant]
  11. HYDROCODONE/APAP [Concomitant]
  12. AZELASTINE HCL [Concomitant]
  13. NASONEX [Concomitant]
  14. VOLTAREN [Concomitant]

REACTIONS (4)
  - Back pain [None]
  - Musculoskeletal pain [None]
  - Pain in extremity [None]
  - Chest pain [None]
